FAERS Safety Report 6063597-4 (Version None)
Quarter: 2009Q1

REPORT INFORMATION
  Report Type: 
  Country: None (occurrence: None)
  Receive Date: 20090203
  Receipt Date: 20090126
  Transmission Date: 20090719
  Serious: Yes (Hospitalization)
  Sender: FDA-Public Use
  Company Number: SE-ABBOTT-08P-150-0493339-00

PATIENT
  Sex: Male

DRUGS (5)
  1. HUMIRA [Suspect]
     Indication: COLITIS ULCERATIVE
     Dosage: FIRST DOSE (INTRODUCTION DOSE) WAS 80MG, AFTER THAT 40MG EVERY SECOND WEEK
     Route: 058
     Dates: start: 20080326
  2. ASACOL [Concomitant]
     Indication: COLITIS ULCERATIVE
     Route: 048
  3. PERSTANTIN DEPOT [Concomitant]
     Indication: CEREBROVASCULAR ACCIDENT
     Route: 048
  4. TROMBYL [Concomitant]
     Indication: CEREBROVASCULAR ACCIDENT
     Route: 048
  5. SIMVASTATIN [Concomitant]
     Indication: DRUG USE FOR UNKNOWN INDICATION
     Route: 048

REACTIONS (5)
  - ARTHRALGIA [None]
  - CARDIAC ENZYMES INCREASED [None]
  - CHEST DISCOMFORT [None]
  - MYALGIA [None]
  - PALPITATIONS [None]
